FAERS Safety Report 4907116-1 (Version None)
Quarter: 2006Q1

REPORT INFORMATION
  Report Type: 
  Country: None (occurrence: None)
  Receive Date: 20060206
  Receipt Date: 20060123
  Transmission Date: 20060701
  Serious: Yes (Hospitalization, Other)
  Sender: FDA-Public Use
  Company Number: 2005128821

PATIENT
  Age: 15 Year
  Sex: Male
  Weight: 67 kg

DRUGS (1)
  1. GENOTROPIN [Suspect]
     Indication: HYPOPITUITARISM
     Dosage: 0.64U/KG/WEEKLY), SUBCUTANEOUS
     Route: 058
     Dates: start: 20021127, end: 20050627

REACTIONS (8)
  - EDUCATIONAL PROBLEM [None]
  - HYPERSOMNIA [None]
  - INCREASED APPETITE [None]
  - SCHIZOPHRENIA, PARANOID TYPE [None]
  - SOMNOLENCE [None]
  - THIRST [None]
  - URINE OUTPUT INCREASED [None]
  - WEIGHT INCREASED [None]
